FAERS Safety Report 6714103-X (Version None)
Quarter: 2010Q2

REPORT INFORMATION
  Report Type: 
  Country: None (occurrence: None)
  Receive Date: 20100506
  Receipt Date: 20100428
  Transmission Date: 20101027
  Serious: Yes (Other)
  Sender: FDA-Public Use
  Company Number: US-AMGEN-KDL409201

PATIENT
  Sex: Female

DRUGS (3)
  1. SENSIPAR [Suspect]
     Indication: HYPERPARATHYROIDISM SECONDARY
  2. HECTORAL [Concomitant]
  3. PHOSLO [Concomitant]

REACTIONS (3)
  - BLOOD CALCIUM DECREASED [None]
  - MUSCLE TWITCHING [None]
  - TREMOR [None]
